FAERS Safety Report 4619415-1 (Version None)
Quarter: 2005Q2

REPORT INFORMATION
  Report Type: 
  Country: None (occurrence: None)
  Receive Date: 20050325
  Receipt Date: 20020429
  Transmission Date: 20051028
  Serious: Yes (Hospitalization)
  Sender: FDA-Public Use
  Company Number: 64886-2002-001

PATIENT

DRUGS (1)
  1. FLUOROURACIL INJ [Suspect]
     Dosage: IV
     Route: 042

REACTIONS (4)
  - DIARRHOEA [None]
  - NAUSEA [None]
  - STOMATITIS [None]
  - VOMITING [None]
